FAERS Safety Report 19205451 (Version 1)
Quarter: 2021Q2

REPORT INFORMATION
  Report Type: Spontaneous
  Country: US (occurrence: US)
  Receive Date: 20210430
  Receipt Date: 20210430
  Transmission Date: 20210717
  Serious: No
  Sender: FDA-Public Use
  Company Number: None

PATIENT
  Sex: Female

DRUGS (1)
  1. PLEGRIDY [Suspect]
     Active Substance: PEGINTERFERON BETA-1A
     Indication: MULTIPLE SCLEROSIS
     Dosage: ?          OTHER FREQUENCY:EVERY14DAYS ;?DOSE OR AMOUNT: 1 SYRINGE?
     Route: 058
     Dates: start: 2018

REACTIONS (2)
  - Fatigue [None]
  - Feeling abnormal [None]
